FAERS Safety Report 18748728 (Version 1)
Quarter: 2021Q1

REPORT INFORMATION
  Report Type: Spontaneous
  Country: US (occurrence: US)
  Receive Date: 20210115
  Receipt Date: 20210115
  Transmission Date: 20210419
  Serious: No
  Sender: FDA-Public Use
  Company Number: US-PFIZER INC-2021018043

PATIENT
  Age: 51 Year
  Sex: Female

DRUGS (1)
  1. IBRANCE [Suspect]
     Active Substance: PALBOCICLIB
     Dosage: UNK

REACTIONS (6)
  - Bronchitis [Recovering/Resolving]
  - Lung disorder [Unknown]
  - Pyrexia [Unknown]
  - Cough [Recovering/Resolving]
  - Respiratory tract congestion [Unknown]
  - Dyspnoea [Recovering/Resolving]
